FAERS Safety Report 18712449 (Version 2)
Quarter: 2021Q1

REPORT INFORMATION
  Report Type: Spontaneous
  Country: CZ (occurrence: CZ)
  Receive Date: 20210107
  Receipt Date: 20210208
  Transmission Date: 20210419
  Serious: Yes (Other)
  Sender: FDA-Public Use
  Company Number: NVSC2020CZ325256

PATIENT
  Age: 35 Year
  Sex: Female

DRUGS (10)
  1. CARBOPLATIN. [Suspect]
     Active Substance: CARBOPLATIN
     Indication: OVARIAN CANCER
     Dosage: UNK, CYCLIC (4 CYCLES)
     Route: 065
     Dates: start: 201906
  2. BEVACIZUMAB. [Suspect]
     Active Substance: BEVACIZUMAB
     Indication: METASTASES TO LIVER
     Dosage: UNK, CYCLIC (10 CYCLES UNTIL MAY 2020)
     Route: 065
  3. GEMCITABINE. [Suspect]
     Active Substance: GEMCITABINE
     Indication: OVARIAN CANCER METASTATIC
     Dosage: UNK, CYCLIC (4 CYCLES)
     Route: 065
     Dates: start: 201906
  4. CARBOPLATIN. [Suspect]
     Active Substance: CARBOPLATIN
     Indication: METASTASES TO LIVER
  5. BEVACIZUMAB. [Suspect]
     Active Substance: BEVACIZUMAB
     Indication: OVARIAN CANCER METASTATIC
     Dosage: UNK, CYCLIC (MONOTHERAPY FOR 4 CYCLES)
     Route: 065
     Dates: start: 201906
  6. PACLITAXEL. [Suspect]
     Active Substance: PACLITAXEL
     Indication: OVARIAN EPITHELIAL CANCER
     Dosage: UNK, CYCLIC (6 CYCLES)
     Route: 065
  7. GEMCITABINE. [Suspect]
     Active Substance: GEMCITABINE
     Indication: METASTASES TO LIVER
     Dosage: UNK, CYCLIC (10 CYCLES, UNTIL MAY 2020)
     Route: 065
     Dates: start: 202005, end: 202005
  8. OXALIPLATIN. [Suspect]
     Active Substance: OXALIPLATIN
     Indication: COLON CANCER
     Dosage: UNK, CYCLIC (3 CYCLES IN TOMOX REGIMEN (RALTITREXED + OXALIPLATIN)
     Route: 065
     Dates: start: 200210
  9. CARBOPLATIN. [Suspect]
     Active Substance: CARBOPLATIN
     Indication: OVARIAN EPITHELIAL CANCER
     Dosage: UNK, CYCLIC (6 CYCLES)
     Route: 065
     Dates: start: 201906
  10. DOCETAXEL. [Suspect]
     Active Substance: DOCETAXEL
     Indication: OVARIAN CANCER
     Dosage: UNK, CYCLIC (3 CYCLES)
     Route: 065
     Dates: start: 202006

REACTIONS (7)
  - Disease progression [Unknown]
  - Haematotoxicity [Unknown]
  - Toxicity to various agents [Unknown]
  - Malignant neoplasm progression [Unknown]
  - Ovarian cancer metastatic [Unknown]
  - Therapeutic product effect incomplete [Unknown]
  - Drug hypersensitivity [Unknown]

NARRATIVE: CASE EVENT DATE: 202006
